FAERS Safety Report 10605968 (Version 1)
Quarter: 2014Q4

REPORT INFORMATION
  Report Type: Spontaneous
  Country: US (occurrence: US)
  Receive Date: 20141125
  Receipt Date: 20141125
  Transmission Date: 20150529
  Serious: No
  Sender: FDA-Public Use
  Company Number: US-BIOGENIDEC-2014BI120569

PATIENT
  Age: 56 Year
  Sex: Female

DRUGS (2)
  1. TECFIDERA [Suspect]
     Active Substance: DIMETHYL FUMARATE
     Indication: MULTIPLE SCLEROSIS
     Dates: start: 2014
  2. TECFIDERA [Suspect]
     Active Substance: DIMETHYL FUMARATE
     Indication: MULTIPLE SCLEROSIS
     Route: 048
     Dates: start: 20141104

REACTIONS (13)
  - Tremor [Not Recovered/Not Resolved]
  - Abdominal pain upper [Not Recovered/Not Resolved]
  - Nausea [Not Recovered/Not Resolved]
  - Abdominal discomfort [Not Recovered/Not Resolved]
  - Malaise [Not Recovered/Not Resolved]
  - Hypersomnia [Unknown]
  - Asthenia [Not Recovered/Not Resolved]
  - Abdominal distension [Not Recovered/Not Resolved]
  - Fatigue [Not Recovered/Not Resolved]
  - Nervousness [Not Recovered/Not Resolved]
  - Muscle tightness [Not Recovered/Not Resolved]
  - Mobility decreased [Not Recovered/Not Resolved]
  - Faeces discoloured [Not Recovered/Not Resolved]

NARRATIVE: CASE EVENT DATE: 2014
